FAERS Safety Report 14974292 (Version 1)
Quarter: 2018Q2

REPORT INFORMATION
  Report Type: Report from Study
  Country: US (occurrence: US)
  Receive Date: 20180605
  Receipt Date: 20180605
  Transmission Date: 20180711
  Serious: Yes (Hospitalization, Other)
  Sender: FDA-Public Use
  Company Number: US-GILEAD-2018-0341797

PATIENT
  Age: 67 Year
  Sex: Female

DRUGS (3)
  1. AMBRISENTAN [Suspect]
     Active Substance: AMBRISENTAN
     Indication: COR PULMONALE
     Dosage: 10 MG, QD
     Route: 065
     Dates: start: 201003
  2. UPTRAVI [Concomitant]
     Active Substance: SELEXIPAG
     Indication: COR PULMONALE
     Dates: start: 201603
  3. ADCIRCA [Concomitant]
     Active Substance: TADALAFIL
     Indication: COR PULMONALE
     Dates: start: 201006

REACTIONS (1)
  - Pneumonia [Recovering/Resolving]
